FAERS Safety Report 5202557-X (Version None)
Quarter: 2007Q1

REPORT INFORMATION
  Report Type: 
  Country: None (occurrence: None)
  Receive Date: 20070109
  Receipt Date: 20061229
  Transmission Date: 20070707
  Serious: Yes (Other)
  Sender: FDA-Public Use
  Company Number: US-PFIZER INC-2007000275

PATIENT
  Sex: Male
  Weight: 59 kg

DRUGS (3)
  1. METHYLPREDNISOLONE TABLET [Suspect]
     Indication: ANGIOEDEMA
  2. EFFEXOR [Concomitant]
  3. DOXYCYCLINE [Concomitant]

REACTIONS (6)
  - BLISTER [None]
  - ERYTHEMA [None]
  - EYE SWELLING [None]
  - FEELING ABNORMAL [None]
  - SKIN DISCOLOURATION [None]
  - URTICARIA [None]
